FAERS Safety Report 6381292-9 (Version None)
Quarter: 2009Q3

REPORT INFORMATION
  Report Type: 
  Country: None (occurrence: None)
  Receive Date: 20090929
  Receipt Date: 20090917
  Transmission Date: 20100115
  Serious: Yes (Death, Other)
  Sender: FDA-Public Use
  Company Number: IT-PFIZER INC-2009270768

PATIENT
  Age: 44 Year

DRUGS (1)
  1. SUTENT [Suspect]
     Indication: RENAL CANCER METASTATIC
     Dosage: 50 MG, CYCLIC

REACTIONS (5)
  - DISEASE PROGRESSION [None]
  - DISSEMINATED INTRAVASCULAR COAGULATION [None]
  - METASTATIC RENAL CELL CARCINOMA [None]
  - PARANEOPLASTIC SYNDROME [None]
  - PLATELET COUNT DECREASED [None]
